FAERS Safety Report 5602780-6 (Version None)
Quarter: 2008Q1

REPORT INFORMATION
  Report Type: 
  Country: None (occurrence: None)
  Receive Date: 20080125
  Receipt Date: 20080114
  Transmission Date: 20080703
  Serious: Yes (Life-Threatening, Hospitalization)
  Sender: FDA-Public Use
  Company Number: US-KINGPHARMUSA00001-K200400437

PATIENT

DRUGS (12)
  1. ALTACE [Suspect]
     Indication: CARDIOVASCULAR EVENT PROPHYLAXIS
     Route: 048
  2. ALTACE [Suspect]
     Dosage: 2.5 MG, QD
     Route: 048
     Dates: start: 20011213, end: 20011201
  3. LIPITOR [Concomitant]
     Indication: BLOOD CHOLESTEROL
     Dosage: UNK, QD
     Route: 048
     Dates: end: 20011113
  4. TOPROL-XL [Concomitant]
     Dosage: 25 MG, 1/2 QD
     Route: 048
     Dates: end: 20011113
  5. FAMVIR [Concomitant]
     Indication: HERPES SIMPLEX
     Dosage: 250 MG, TID
     Route: 048
     Dates: end: 20011113
  6. NITROGLYCERIN [Concomitant]
     Dosage: 1/150, PRN
     Route: 060
     Dates: end: 20011113
  7. ASPIRIN [Concomitant]
     Dosage: 80 MG, QD
     Route: 048
     Dates: end: 20011113
  8. HAWTHORN [Concomitant]
     Dosage: 500 UNK, UNK
     Dates: end: 20011113
  9. VALERIAN [Concomitant]
     Dates: end: 20011113
  10. OMEGA 3 [Concomitant]
     Dates: end: 20011113
  11. MULTIVITAMIN ^LAPPE^ [Concomitant]
     Dates: end: 20011113
  12. SUPERTIN [Concomitant]
     Dates: end: 20011113

REACTIONS (3)
  - ALANINE AMINOTRANSFERASE INCREASED [None]
  - ASPARTATE AMINOTRANSFERASE INCREASED [None]
  - HEPATITIS [None]
